FAERS Safety Report 7909617 (Version 2)
Quarter: 2012Q4

REPORT INFORMATION
  Report Type: 
  Country: US (occurrence: US)
  Receive Date: 20110421
  Receipt Date: 20121212
  Transmission Date: 20130627
  Serious: No
  Sender: FDA-Public Use
  Company Number: US-ASTRAZENECA-2011SE09221

PATIENT
  Age: 73 Year
  Sex: Female

DRUGS (3)
  1. TOPROL XL [Suspect]
     Route: 048
  2. TOPROL XL [Suspect]
     Dosage: DOUBLE UP ON HER TOPROL XL
     Route: 048
  3. CRESTOR [Suspect]
     Route: 048

REACTIONS (2)
  - Hypertension [Unknown]
  - Visual impairment [Unknown]
